FAERS Safety Report 8343519-3 (Version None)
Quarter: 2012Q2

REPORT INFORMATION
  Report Type: 
  Country: None (occurrence: None)
  Receive Date: 20120508
  Receipt Date: 20120507
  Transmission Date: 20120825
  Serious: Yes (Other)
  Sender: FDA-Public Use
  Company Number: PHEH2007US03193

PATIENT
  Sex: Female

DRUGS (20)
  1. PENICILLIN ^GRUNENTHAL^ [Concomitant]
  2. HYDROCODONE BITARTRATE [Concomitant]
  3. CLINDAMYCIN [Concomitant]
  4. TRIAMCINOLONE ACETONIDE DIPOTASSIUM PHOSPHATE [Concomitant]
  5. ZITHROMAX [Concomitant]
  6. VITAMIN D [Concomitant]
  7. ZOMETA [Suspect]
     Dosage: UNK
     Dates: start: 20050101, end: 20060101
  8. POTASSIUM CHLORIDE [Concomitant]
  9. TUSSIONEX [Concomitant]
  10. FEMARA [Concomitant]
  11. LIPITOR [Concomitant]
  12. SERTRALINE HYDROCHLORIDE [Concomitant]
  13. SIMVASTATIN [Concomitant]
  14. CALCIUM [Concomitant]
  15. ZOMETA [Suspect]
     Indication: BREAST CANCER METASTATIC
     Route: 042
     Dates: start: 20010101, end: 20060101
  16. ECONAZOLE NITRATE [Concomitant]
  17. CHLORHEXIDINE GLUCONATE [Concomitant]
  18. LEVOTHYROXINE SODIUM [Concomitant]
  19. AMOXICILLIN [Concomitant]
  20. DOXYCYCLINE [Concomitant]

REACTIONS (25)
  - DEPRESSION [None]
  - PRIMARY SEQUESTRUM [None]
  - PALPITATIONS [None]
  - SINUSITIS [None]
  - NEPHROLITHIASIS [None]
  - PAIN [None]
  - OSTEOARTHRITIS [None]
  - DECREASED INTEREST [None]
  - HYPERLIPIDAEMIA [None]
  - DYSPNOEA [None]
  - RENAL CYST [None]
  - OSTEONECROSIS OF JAW [None]
  - ANXIETY [None]
  - MUSCLE TIGHTNESS [None]
  - HYPOTHYROIDISM [None]
  - PULMONARY EMBOLISM [None]
  - DEEP VEIN THROMBOSIS [None]
  - UPPER RESPIRATORY TRACT INFECTION [None]
  - GENERAL PHYSICAL HEALTH DETERIORATION [None]
  - IMPAIRED HEALING [None]
  - PULMONARY MASS [None]
  - DIVERTICULITIS [None]
  - DENTURE WEARER [None]
  - HEPATIC STEATOSIS [None]
  - BRONCHITIS [None]
